FAERS Safety Report 22400100 (Version 2)
Quarter: 2023Q2

REPORT INFORMATION
  Report Type: Spontaneous
  Country: US (occurrence: US)
  Receive Date: 20230602
  Receipt Date: 20230630
  Transmission Date: 20230722
  Serious: Yes (Other)
  Sender: FDA-Public Use
  Company Number: US-BRISTOL-MYERS SQUIBB COMPANY-2023-078014

PATIENT
  Age: 79 Year
  Sex: Female

DRUGS (1)
  1. REVLIMID [Suspect]
     Active Substance: LENALIDOMIDE
     Indication: Product used for unknown indication
     Dosage: FREQUENCY: OTHER
     Route: 048

REACTIONS (6)
  - Crying [Unknown]
  - Anxiety [Unknown]
  - Nausea [Unknown]
  - Constipation [Unknown]
  - Vomiting [Unknown]
  - Rib fracture [Unknown]

NARRATIVE: CASE EVENT DATE: 20230502
